FAERS Safety Report 19025873 (Version 1)
Quarter: 2021Q1

REPORT INFORMATION
  Report Type: Spontaneous
  Country: US (occurrence: US)
  Receive Date: 20210318
  Receipt Date: 20210318
  Transmission Date: 20210420
  Serious: Yes (Life-Threatening, Hospitalization, Disabling)
  Sender: FDA-Public Use
  Company Number: None

PATIENT
  Age: 78 Year
  Sex: Male

DRUGS (2)
  1. BENDEKA [Suspect]
     Active Substance: BENDAMUSTINE HYDROCHLORIDE
     Indication: CHRONIC LYMPHOCYTIC LEUKAEMIA
     Dosage: ?          OTHER FREQUENCY:MONTHLY VIA PORT;?
     Route: 042
  2. BENDEKA [Suspect]
     Active Substance: BENDAMUSTINE HYDROCHLORIDE
     Indication: NON-HODGKIN^S LYMPHOMA
     Dosage: ?          OTHER FREQUENCY:MONTHLY VIA PORT;?
     Route: 042

REACTIONS (10)
  - Dyspnoea [None]
  - Urinary retention [None]
  - Renal injury [None]
  - Traumatic lung injury [None]
  - Prostatomegaly [None]
  - Oxygen saturation decreased [None]
  - Heart rate increased [None]
  - Heart injury [None]
  - Cardiac failure [None]
  - Fluid retention [None]

NARRATIVE: CASE EVENT DATE: 20210316
